FAERS Safety Report 5142902-7 (Version None)
Quarter: 2006Q4

REPORT INFORMATION
  Report Type: 
  Country: None (occurrence: None)
  Receive Date: 20061030
  Receipt Date: 20061019
  Transmission Date: 20070319
  Serious: Yes (Death)
  Sender: FDA-Public Use
  Company Number: 2006119476

PATIENT
  Age: 33 Year
  Sex: Female

DRUGS (5)
  1. ZIPRASIDONE HCL [Suspect]
     Indication: SCHIZOPHRENIA
     Dosage: SEE IMAGE
     Dates: start: 20060811, end: 20060813
  2. ZIPRASIDONE HCL [Suspect]
     Indication: SCHIZOPHRENIA
     Dosage: SEE IMAGE
     Dates: start: 20060814
  3. AMISULPRIDE (AMISULPRIDE) [Concomitant]
  4. HALOPERIDOL [Concomitant]
  5. FLUPENTIXOL (FLUPENTIXOL) [Concomitant]

REACTIONS (1)
  - ARRHYTHMIA [None]
